FAERS Safety Report 14322389 (Version 2)
Quarter: 2018Q1

REPORT INFORMATION
  Report Type: Spontaneous
  Country: AT (occurrence: AT)
  Receive Date: 20171225
  Receipt Date: 20180207
  Transmission Date: 20180509
  Serious: Yes (Hospitalization)
  Sender: FDA-Public Use
  Company Number: AT-OTSUKA-2017_027875

PATIENT
  Age: 30 Year
  Sex: Female
  Weight: 100 kg

DRUGS (136)
  1. CIPRALEX [Suspect]
     Active Substance: ESCITALOPRAM OXALATE
     Indication: BIPOLAR DISORDER
     Dosage: 10 MG, UNK
     Route: 048
     Dates: start: 20151113, end: 20151120
  2. ZELDOX [Interacting]
     Active Substance: ZIPRASIDONE
     Indication: BIPOLAR DISORDER
     Dosage: 20 MG, UNK
     Route: 048
     Dates: start: 20151117, end: 20151117
  3. ZELDOX [Interacting]
     Active Substance: ZIPRASIDONE
     Dosage: 80 MG, UNK
     Route: 065
     Dates: start: 20151119, end: 20151119
  4. ZELDOX [Interacting]
     Active Substance: ZIPRASIDONE
     Dosage: UNK, UNKNOWN
     Route: 065
  5. ZYPREXA [Interacting]
     Active Substance: OLANZAPINE
     Dosage: 10 MG, UNK
     Route: 048
     Dates: start: 20151204, end: 20151204
  6. TRITTICO [Suspect]
     Active Substance: TRAZODONE HYDROCHLORIDE
     Indication: BIPOLAR DISORDER
     Dosage: 100 MG, UNK
     Route: 048
  7. TRITTICO [Suspect]
     Active Substance: TRAZODONE HYDROCHLORIDE
     Dosage: 250 MG, UNKNOWN
     Route: 048
     Dates: start: 20151108, end: 20151108
  8. QUILONIUM R [Interacting]
     Active Substance: LITHIUM CARBONATE
     Dosage: 675 MG, UNK
     Route: 065
     Dates: start: 20151204, end: 20151206
  9. INDERAL [Concomitant]
     Active Substance: PROPRANOLOL HYDROCHLORIDE
     Dosage: 30 MG, UNKNOWN
     Route: 048
     Dates: start: 20151124, end: 20151125
  10. INDERAL [Concomitant]
     Active Substance: PROPRANOLOL HYDROCHLORIDE
     Dosage: 60 MG, UNKNOWN
     Route: 048
     Dates: start: 20151202, end: 20151202
  11. INDERAL [Concomitant]
     Active Substance: PROPRANOLOL HYDROCHLORIDE
     Dosage: 40 MG, UNK
     Route: 048
     Dates: start: 20151203, end: 20151207
  12. NEUROTROPIC CAPLETS [Concomitant]
     Dosage: 900 MG, UNK
     Route: 048
  13. NOZINAN [Concomitant]
     Active Substance: LEVOMEPROMAZINE
     Dosage: 50 MG, UNK
     Route: 065
     Dates: start: 20151129, end: 20151130
  14. AKINETON [Concomitant]
     Active Substance: BIPERIDEN HYDROCHLORIDE
     Indication: PRODUCT USED FOR UNKNOWN INDICATION
     Dosage: 2 MG, UNK
     Route: 065
     Dates: start: 20151221, end: 20151221
  15. PRAXITEN [Concomitant]
     Active Substance: OXAZEPAM
     Indication: PRODUCT USED FOR UNKNOWN INDICATION
     Dosage: 25 MG, UNK
     Route: 065
     Dates: start: 20151127, end: 20151214
  16. TEMESTA (LORAZEPAM) [Concomitant]
     Active Substance: LORAZEPAM
     Indication: PRODUCT USED FOR UNKNOWN INDICATION
     Dosage: UNK
     Route: 065
  17. TEMESTA (LORAZEPAM) [Concomitant]
     Active Substance: LORAZEPAM
     Dosage: 6.25 MG, UNK
     Route: 048
     Dates: start: 20151210, end: 20151211
  18. TEMESTA (LORAZEPAM) [Concomitant]
     Active Substance: LORAZEPAM
     Dosage: 3.25 MG, UNK
     Route: 048
     Dates: start: 20151114, end: 20151115
  19. ABILIFY [Suspect]
     Active Substance: ARIPIPRAZOLE
     Dosage: 2.5 MG, QD
     Route: 048
     Dates: start: 20151105, end: 20151106
  20. ZELDOX [Interacting]
     Active Substance: ZIPRASIDONE
     Dosage: 40 MG, UNK
     Route: 065
     Dates: start: 20151118, end: 20151118
  21. TRITTICO [Suspect]
     Active Substance: TRAZODONE HYDROCHLORIDE
     Dosage: 150 MG, UNKNOWN
     Route: 048
     Dates: start: 20151203, end: 20160118
  22. RIVOTRIL [Concomitant]
     Active Substance: CLONAZEPAM
     Dosage: 2 MG, UNKNOWN
     Route: 065
     Dates: start: 20151203, end: 20151214
  23. INDERAL [Concomitant]
     Active Substance: PROPRANOLOL HYDROCHLORIDE
     Dosage: 30 MG, UNK
     Route: 048
     Dates: start: 20151119, end: 20151121
  24. NEUROTROPIC CAPLETS [Concomitant]
     Dosage: 600 MG, UNK
     Route: 048
     Dates: start: 20151109, end: 20151110
  25. NEUROTROPIC CAPLETS [Concomitant]
     Dosage: 600 MG, UNK
     Route: 048
     Dates: start: 20151123, end: 20151125
  26. LAMICTAL [Concomitant]
     Active Substance: LAMOTRIGINE
     Dosage: 100 MG, UNK
     Route: 048
     Dates: start: 20151109, end: 20151122
  27. AKINETON [Concomitant]
     Active Substance: BIPERIDEN HYDROCHLORIDE
     Dosage: 4 MG, UNK
     Route: 065
     Dates: start: 20151120, end: 20151120
  28. TEMESTA (LORAZEPAM) [Concomitant]
     Active Substance: LORAZEPAM
     Dosage: 4.5 MG, UNK
     Route: 048
     Dates: start: 20151129, end: 20151130
  29. TEMESTA (LORAZEPAM) [Concomitant]
     Active Substance: LORAZEPAM
     Dosage: 6.5 MG, UNK
     Route: 048
     Dates: start: 20151128, end: 20151128
  30. TEMESTA (LORAZEPAM) [Concomitant]
     Active Substance: LORAZEPAM
     Dosage: 4.5 MG, UNK
     Route: 048
     Dates: start: 20151126, end: 20151127
  31. NEUROTROP [Concomitant]
     Dosage: 900 MG, UNK
     Route: 048
     Dates: start: 20151111, end: 20151111
  32. NEUROTROP [Concomitant]
     Dosage: 300 MG, UNK
     Route: 048
     Dates: start: 20151126, end: 20151130
  33. ABILIFY [Suspect]
     Active Substance: ARIPIPRAZOLE
     Dosage: 7.5 MG, QD
     Route: 048
     Dates: start: 20151112, end: 20151115
  34. SYCREST [Interacting]
     Active Substance: ASENAPINE MALEATE
     Dosage: 15 MG, UNK
     Route: 065
     Dates: start: 20151221, end: 20151230
  35. ZYPREXA [Interacting]
     Active Substance: OLANZAPINE
     Dosage: 20 MG, UNK
     Route: 048
     Dates: start: 20151108, end: 20151108
  36. TRITTICO [Suspect]
     Active Substance: TRAZODONE HYDROCHLORIDE
     Dosage: 150 MG, UNK
     Route: 048
     Dates: start: 20151107, end: 20151107
  37. NEUROTROPIC CAPLETS [Concomitant]
     Dosage: 300 MG, UNK
     Route: 048
     Dates: start: 20151126, end: 20151130
  38. LAMICTAL [Concomitant]
     Active Substance: LAMOTRIGINE
     Dosage: 300 MG, UNK
     Route: 048
     Dates: start: 20151215
  39. PRAXITEN [Concomitant]
     Active Substance: OXAZEPAM
     Dosage: 50 MG, UNK
     Route: 065
     Dates: start: 20151120, end: 20151126
  40. TEMESTA (LORAZEPAM) [Concomitant]
     Active Substance: LORAZEPAM
     Dosage: 4 MG, UNK
     Route: 048
     Dates: start: 20151121, end: 20151121
  41. TEMESTA (LORAZEPAM) [Concomitant]
     Active Substance: LORAZEPAM
     Dosage: 3.75 MG, UNK
     Route: 048
     Dates: start: 20151112, end: 20151112
  42. NEUROTROP [Concomitant]
     Indication: PRODUCT USED FOR UNKNOWN INDICATION
     Dosage: 600 MG, UNK
     Route: 048
     Dates: start: 20151108, end: 20151108
  43. NEUROTROP [Concomitant]
     Dosage: 600 MG, UNK
     Route: 048
     Dates: start: 20151123, end: 20151125
  44. NEUROTROP [Concomitant]
     Dosage: 900 MG, UNK
     Route: 048
     Dates: start: 201510, end: 20151108
  45. NEUROTROP [Concomitant]
     Dosage: 900 MG, UNK
     Route: 048
     Dates: start: 20151111, end: 20151122
  46. ABILIFY [Suspect]
     Active Substance: ARIPIPRAZOLE
     Indication: BIPOLAR DISORDER
     Dosage: 2.5 MG, QD
     Route: 048
     Dates: start: 20150105, end: 20150117
  47. CIPRALEX [Suspect]
     Active Substance: ESCITALOPRAM OXALATE
     Dosage: 5 MG, UNK
     Route: 048
     Dates: start: 20151113, end: 20151120
  48. ZYPREXA [Interacting]
     Active Substance: OLANZAPINE
     Dosage: 20 MG, UNK
     Route: 048
     Dates: start: 20151215, end: 20151215
  49. ZYPREXA [Interacting]
     Active Substance: OLANZAPINE
     Dosage: 25 MG, UNK
     Route: 048
     Dates: start: 20151109, end: 20151109
  50. TRITTICO [Suspect]
     Active Substance: TRAZODONE HYDROCHLORIDE
     Dosage: 300 MG, UNKNOWN
     Route: 048
     Dates: start: 20151109, end: 20151202
  51. RIVOTRIL [Concomitant]
     Active Substance: CLONAZEPAM
     Dosage: 4 MG, UNKNOWN
     Route: 065
     Dates: start: 20151215, end: 20151226
  52. RIVOTRIL [Concomitant]
     Active Substance: CLONAZEPAM
     Dosage: 1 MG, UNKNOWN
     Route: 065
     Dates: start: 20151106, end: 20151106
  53. INDERAL [Concomitant]
     Active Substance: PROPRANOLOL HYDROCHLORIDE
     Dosage: 40 MG, UNKNOWN
     Route: 048
     Dates: start: 20151203, end: 20151207
  54. NOZINAN [Concomitant]
     Active Substance: LEVOMEPROMAZINE
     Dosage: 50 MG, UNK
     Route: 065
     Dates: start: 20151129, end: 20151129
  55. NOZINAN [Concomitant]
     Active Substance: LEVOMEPROMAZINE
     Dosage: 100 MG, UNK
     Route: 065
     Dates: start: 20151112, end: 20151112
  56. NOZINAN [Concomitant]
     Active Substance: LEVOMEPROMAZINE
     Dosage: 25 MG, UNK
     Route: 065
     Dates: start: 20151122, end: 20151122
  57. AKINETON [Concomitant]
     Active Substance: BIPERIDEN HYDROCHLORIDE
     Dosage: 2 MG, UNK
     Route: 065
     Dates: start: 20151202, end: 20151202
  58. DOMINAL (PROTHIPENDYL HYDROCHLORIDE) [Concomitant]
     Active Substance: PROTHIPENDYL HYDROCHLORIDE
     Dosage: 120 MG, UNK
     Route: 048
     Dates: end: 20151104
  59. SIFROL [Concomitant]
     Active Substance: PRAMIPEXOLE
     Indication: PRODUCT USED FOR UNKNOWN INDICATION
     Dosage: 0.26 MG, UNKNOWN
     Route: 065
     Dates: start: 20151203, end: 20151206
  60. TEMESTA (LORAZEPAM) [Concomitant]
     Active Substance: LORAZEPAM
     Dosage: 3 MG, UNK
     Route: 065
     Dates: end: 20151227
  61. TEMESTA (LORAZEPAM) [Concomitant]
     Active Substance: LORAZEPAM
     Dosage: 8 MG, UNK
     Route: 048
     Dates: start: 20151124, end: 20151124
  62. TEMESTA (LORAZEPAM) [Concomitant]
     Active Substance: LORAZEPAM
     Dosage: 3 MG, UNK
     Route: 048
     Dates: start: 20151116, end: 20151116
  63. TEMESTA (LORAZEPAM) [Concomitant]
     Active Substance: LORAZEPAM
     Dosage: 8.75 MG, UNK
     Route: 048
     Dates: start: 20151111, end: 20151111
  64. TEMESTA (LORAZEPAM) [Concomitant]
     Active Substance: LORAZEPAM
     Dosage: 7.5 MG, UNK
     Route: 048
     Dates: start: 20151106, end: 20151106
  65. ZOLDEM [Concomitant]
     Active Substance: ZOLPIDEM TARTRATE
     Indication: PRODUCT USED FOR UNKNOWN INDICATION
     Dosage: 5 MG, UNK
     Route: 065
     Dates: start: 20151109, end: 20151109
  66. GASTROZEPIN [Concomitant]
     Active Substance: PIRENZEPINE HYDROCHLORIDE
     Indication: PRODUCT USED FOR UNKNOWN INDICATION
     Dosage: 100 MG, UNK
     Route: 065
     Dates: start: 20151217, end: 20151221
  67. ADASUVE [Concomitant]
     Active Substance: LOXAPINE
     Indication: PRODUCT USED FOR UNKNOWN INDICATION
     Dosage: UNK, UNKNOWN
     Route: 065
  68. SYCREST [Interacting]
     Active Substance: ASENAPINE MALEATE
     Indication: PRODUCT USED FOR UNKNOWN INDICATION
     Dosage: 5 MG, UNK
     Route: 065
     Dates: start: 20151210, end: 20151211
  69. ZELDOX [Interacting]
     Active Substance: ZIPRASIDONE
     Dosage: 120 MG, UNK
     Route: 065
     Dates: start: 20151120, end: 20151121
  70. ZYPREXA [Interacting]
     Active Substance: OLANZAPINE
     Dosage: 30 MG, UNK
     Route: 048
     Dates: start: 20151110, end: 20151115
  71. ZYPREXA [Interacting]
     Active Substance: OLANZAPINE
     Dosage: 10 MG, UNK
     Route: 048
     Dates: start: 20151105, end: 20151105
  72. FLUCTINE [Suspect]
     Active Substance: FLUOXETINE HYDROCHLORIDE
     Indication: PRODUCT USED FOR UNKNOWN INDICATION
     Dosage: 20 MG, UNK
     Route: 065
     Dates: start: 20151122, end: 20151123
  73. INDERAL [Concomitant]
     Active Substance: PROPRANOLOL HYDROCHLORIDE
     Dosage: 30 MG, UNKNOWN
     Route: 048
     Dates: start: 20151213, end: 20151214
  74. INDERAL [Concomitant]
     Active Substance: PROPRANOLOL HYDROCHLORIDE
     Dosage: 40 MG, UNKNOWN
     Route: 048
     Dates: start: 20151212, end: 20151212
  75. INDERAL [Concomitant]
     Active Substance: PROPRANOLOL HYDROCHLORIDE
     Dosage: 90 MG, UNKNOWN
     Route: 048
     Dates: start: 20151208, end: 20151210
  76. INDERAL [Concomitant]
     Active Substance: PROPRANOLOL HYDROCHLORIDE
     Dosage: UNK
     Route: 048
     Dates: start: 20151119, end: 20151121
  77. NOZINAN [Concomitant]
     Active Substance: LEVOMEPROMAZINE
     Dosage: 100 MG, UNK
     Route: 065
     Dates: start: 20151223, end: 20151223
  78. NOZINAN [Concomitant]
     Active Substance: LEVOMEPROMAZINE
     Dosage: UNK
     Route: 065
     Dates: start: 20151111, end: 20151111
  79. LAMICTAL [Concomitant]
     Active Substance: LAMOTRIGINE
     Dosage: 300 MG, UNKNOWN
     Route: 048
  80. LAMICTAL [Concomitant]
     Active Substance: LAMOTRIGINE
     Dosage: 100 MG, UNK
     Route: 048
     Dates: start: 20151109, end: 20151122
  81. RISPERDAL [Concomitant]
     Active Substance: RISPERIDONE
     Dosage: 1 MG, UNK
     Route: 065
     Dates: start: 20151106, end: 20151106
  82. TEMESTA (LORAZEPAM) [Concomitant]
     Active Substance: LORAZEPAM
     Dosage: 10 MG, UNK
     Route: 048
     Dates: start: 20151203, end: 20151206
  83. TEMESTA (LORAZEPAM) [Concomitant]
     Active Substance: LORAZEPAM
     Dosage: 7.5 MG, UNK
     Route: 048
     Dates: start: 20151202, end: 20151202
  84. TEMESTA (LORAZEPAM) [Concomitant]
     Active Substance: LORAZEPAM
     Dosage: 8 MG, UNK
     Route: 048
     Dates: start: 20151118, end: 20151119
  85. TEMESTA (LORAZEPAM) [Concomitant]
     Active Substance: LORAZEPAM
     Dosage: 5 MG, UNK
     Route: 048
     Dates: start: 20151113, end: 20151113
  86. TEMESTA (LORAZEPAM) [Concomitant]
     Active Substance: LORAZEPAM
     Dosage: 3 MG, UNK
     Route: 048
     Dates: start: 20151123, end: 20151123
  87. NEUROTROP [Concomitant]
     Dosage: 600 MG, UNK
     Route: 048
     Dates: start: 20151109, end: 20151110
  88. ABILIFY [Suspect]
     Active Substance: ARIPIPRAZOLE
     Dosage: 5 MG, QD
     Route: 048
     Dates: start: 20151117, end: 20151117
  89. ABILIFY [Suspect]
     Active Substance: ARIPIPRAZOLE
     Dosage: 10 MG, QD
     Route: 048
     Dates: start: 20151116, end: 20151116
  90. CIPRALEX [Suspect]
     Active Substance: ESCITALOPRAM OXALATE
     Dosage: 10 MG, UNK
     Route: 048
     Dates: start: 20151108, end: 20151109
  91. SYCREST [Interacting]
     Active Substance: ASENAPINE MALEATE
     Dosage: 10 MG, UNK
     Route: 065
     Dates: start: 20151212, end: 20151214
  92. SYCREST [Interacting]
     Active Substance: ASENAPINE MALEATE
     Dosage: 15 MG, UNK
     Route: 065
     Dates: start: 20151215, end: 20151215
  93. ZYPREXA [Interacting]
     Active Substance: OLANZAPINE
     Indication: BIPOLAR I DISORDER
     Dosage: 1 MG, QD (MG PER DAY1)
     Route: 048
     Dates: start: 20151105, end: 20151215
  94. ZYPREXA [Interacting]
     Active Substance: OLANZAPINE
     Dosage: 20 MG, UNK
     Route: 048
     Dates: start: 20151203, end: 20151203
  95. ZYPREXA [Interacting]
     Active Substance: OLANZAPINE
     Dosage: 30 MG, UNK
     Route: 048
     Dates: start: 20151122, end: 20151202
  96. ZYPREXA [Interacting]
     Active Substance: OLANZAPINE
     Dosage: 20 MG, UNK
     Route: 048
     Dates: start: 20151116, end: 20151121
  97. QUILONIUM R [Interacting]
     Active Substance: LITHIUM CARBONATE
     Dosage: 400 MG, UNK
     Route: 065
     Dates: start: 20151123, end: 20151124
  98. INDERAL [Concomitant]
     Active Substance: PROPRANOLOL HYDROCHLORIDE
     Indication: PRODUCT USED FOR UNKNOWN INDICATION
     Dosage: 50 MG, UNK
     Route: 048
     Dates: start: 20151111, end: 20151111
  99. LAMICTAL [Concomitant]
     Active Substance: LAMOTRIGINE
     Indication: PRODUCT USED FOR UNKNOWN INDICATION
     Dosage: 250 MG, UNK
     Route: 048
     Dates: start: 20151214, end: 20151214
  100. LAMICTAL [Concomitant]
     Active Substance: LAMOTRIGINE
     Dosage: 75 MG, UNK
     Route: 048
     Dates: start: 20151105, end: 20151108
  101. DOMINAL (PROTHIPENDYL HYDROCHLORIDE) [Concomitant]
     Active Substance: PROTHIPENDYL HYDROCHLORIDE
     Dosage: 160 MG, UNK
     Route: 048
     Dates: start: 20151105, end: 20151106
  102. TEMESTA (LORAZEPAM) [Concomitant]
     Active Substance: LORAZEPAM
     Dosage: 8.75 MG, UNK
     Route: 048
     Dates: start: 20151107, end: 20151107
  103. TEMESTA (LORAZEPAM) [Concomitant]
     Active Substance: LORAZEPAM
     Dosage: 5 MG, UNK
     Route: 048
     Dates: start: 20151213, end: 20151214
  104. TEMESTA (LORAZEPAM) [Concomitant]
     Active Substance: LORAZEPAM
     Dosage: 5.5 MG, UNK
     Route: 048
     Dates: start: 20151125, end: 20151125
  105. TEMESTA (LORAZEPAM) [Concomitant]
     Active Substance: LORAZEPAM
     Dosage: 4 MG, UNK
     Route: 048
     Dates: start: 20151201, end: 20151201
  106. ABILIFY [Suspect]
     Active Substance: ARIPIPRAZOLE
     Dosage: 5 MG, QD
     Route: 048
     Dates: start: 20151107, end: 20151111
  107. TRITTICO [Suspect]
     Active Substance: TRAZODONE HYDROCHLORIDE
     Dosage: 100 MG, UNK
     Route: 048
     Dates: start: 20160119
  108. QUILONIUM R [Interacting]
     Active Substance: LITHIUM CARBONATE
     Indication: PRODUCT USED FOR UNKNOWN INDICATION
     Dosage: 900 MG, UNK
     Route: 065
     Dates: start: 20151125, end: 20151201
  109. QUILONIUM R [Interacting]
     Active Substance: LITHIUM CARBONATE
     Dosage: 450 MG, UNK
     Route: 065
     Dates: start: 20151216, end: 20151217
  110. RIVOTRIL [Concomitant]
     Active Substance: CLONAZEPAM
     Indication: PRODUCT USED FOR UNKNOWN INDICATION
     Dosage: 2MG, UNKNOWN
     Route: 065
     Dates: start: 20151104, end: 20151105
  111. NEUROTROPIC CAPLETS [Concomitant]
     Indication: PRODUCT USED FOR UNKNOWN INDICATION
     Dosage: 900 MG, UNK
     Route: 048
     Dates: start: 20151111, end: 20151122
  112. NOZINAN [Concomitant]
     Active Substance: LEVOMEPROMAZINE
     Indication: PRODUCT USED FOR UNKNOWN INDICATION
     Dosage: 150 MG, UNK
     Route: 065
     Dates: start: 20151111, end: 20151111
  113. LAMICTAL [Concomitant]
     Active Substance: LAMOTRIGINE
     Dosage: 50 MG, UNK
     Route: 048
     Dates: start: 201506, end: 20151104
  114. NUBAIN [Concomitant]
     Active Substance: NALBUPHINE HYDROCHLORIDE
     Indication: PRODUCT USED FOR UNKNOWN INDICATION
     Dosage: 1 UNK, 1DF IN 100ML NACL
     Route: 065
     Dates: start: 20151204, end: 20151204
  115. RISPERDAL [Concomitant]
     Active Substance: RISPERIDONE
     Indication: BIPOLAR DISORDER
     Dosage: 2 MG, UNKNOWN
     Route: 065
     Dates: start: 20151105, end: 20151105
  116. AKINETON [Concomitant]
     Active Substance: BIPERIDEN HYDROCHLORIDE
     Dosage: UNK, UNKNOWN
     Route: 065
  117. TEMESTA (LORAZEPAM) [Concomitant]
     Active Substance: LORAZEPAM
     Dosage: 3.75 MG, UNK
     Route: 048
     Dates: start: 20151212, end: 20151212
  118. TEMESTA (LORAZEPAM) [Concomitant]
     Active Substance: LORAZEPAM
     Dosage: 6.25 MG, UNK
     Route: 048
     Dates: start: 20151108, end: 20151110
  119. TEMESTA (LORAZEPAM) [Concomitant]
     Active Substance: LORAZEPAM
     Dosage: 3.75 MG, UNK
     Route: 048
     Dates: start: 20151215, end: 20151222
  120. DIBONDRIN [Concomitant]
     Active Substance: DIPHENHYDRAMINE HYDROCHLORIDE
     Indication: PRODUCT USED FOR UNKNOWN INDICATION
     Dosage: 50 MG, UNK
     Route: 065
     Dates: start: 20151109, end: 20151109
  121. TRUXAL [Concomitant]
     Active Substance: CHLORPROTHIXENE
     Indication: PRODUCT USED FOR UNKNOWN INDICATION
     Dosage: 50 MG, UNK
     Route: 065
     Dates: start: 20151105, end: 20151105
  122. ABILIFY [Suspect]
     Active Substance: ARIPIPRAZOLE
     Dosage: 5 MG, QD
     Route: 048
     Dates: start: 20150105, end: 20151111
  123. CIPRALEX [Suspect]
     Active Substance: ESCITALOPRAM OXALATE
     Dosage: 5 MG, UNK
     Route: 048
     Dates: start: 20151112, end: 20151112
  124. SYCREST [Interacting]
     Active Substance: ASENAPINE MALEATE
     Dosage: 20 MG, UNK
     Route: 065
     Dates: start: 20151216, end: 20151220
  125. ZYPREXA [Interacting]
     Active Substance: OLANZAPINE
     Dosage: 10 MG, UNK
     Route: 048
     Dates: start: 20151107, end: 20151107
  126. RIVOTRIL [Concomitant]
     Active Substance: CLONAZEPAM
     Dosage: 4 MG, UNKNOWN
     Route: 065
     Dates: start: 20151202, end: 20151202
  127. INDERAL [Concomitant]
     Active Substance: PROPRANOLOL HYDROCHLORIDE
     Dosage: 20 MG, UNKNOWN
     Route: 048
     Dates: start: 20151215, end: 20151215
  128. LAMICTAL [Concomitant]
     Active Substance: LAMOTRIGINE
     Dosage: 200 MG, UNK
     Route: 048
     Dates: start: 20151123, end: 20151213
  129. DOMINAL (PROTHIPENDYL HYDROCHLORIDE) [Concomitant]
     Active Substance: PROTHIPENDYL HYDROCHLORIDE
     Indication: PRODUCT USED FOR UNKNOWN INDICATION
     Dosage: 160 MG, UNK
     Route: 048
     Dates: start: 20151117, end: 20151121
  130. DOMINAL (PROTHIPENDYL HYDROCHLORIDE) [Concomitant]
     Active Substance: PROTHIPENDYL HYDROCHLORIDE
     Dosage: 80 MG, UNK
     Route: 048
     Dates: start: 20151115, end: 20151116
  131. SIFROL [Concomitant]
     Active Substance: PRAMIPEXOLE
     Dosage: 0.34 MG, UNKNOWN
     Route: 065
     Dates: start: 20151207, end: 20151210
  132. TEMESTA (LORAZEPAM) [Concomitant]
     Active Substance: LORAZEPAM
     Dosage: 3 MG, UNK
     Route: 048
     Dates: start: 20151120, end: 20151120
  133. TEMESTA (LORAZEPAM) [Concomitant]
     Active Substance: LORAZEPAM
     Dosage: 8.75 MG, UNK
     Route: 048
     Dates: start: 20151107, end: 20151209
  134. TEMESTA (LORAZEPAM) [Concomitant]
     Active Substance: LORAZEPAM
     Dosage: 5.5 MG, UNK
     Route: 048
     Dates: start: 20151117, end: 20151117
  135. TEMESTA (LORAZEPAM) [Concomitant]
     Active Substance: LORAZEPAM
     Dosage: 5.5 MG, UNK
     Route: 048
     Dates: start: 20151122, end: 20151122
  136. LITHIUM. [Concomitant]
     Active Substance: LITHIUM
     Indication: PRODUCT USED FOR UNKNOWN INDICATION
     Dosage: UNK, UNKNOWN
     Route: 065

REACTIONS (5)
  - Drug interaction [Unknown]
  - Alanine aminotransferase increased [Recovered/Resolved]
  - Akathisia [Recovered/Resolved]
  - Gamma-glutamyltransferase increased [Recovered/Resolved]
  - Blood alkaline phosphatase increased [Recovered/Resolved]

NARRATIVE: CASE EVENT DATE: 20151105
